FAERS Safety Report 8493205-4 (Version None)
Quarter: 2012Q3

REPORT INFORMATION
  Report Type: 
  Country: None (occurrence: None)
  Receive Date: 20120706
  Receipt Date: 20120627
  Transmission Date: 20120928
  Serious: No
  Sender: FDA-Public Use
  Company Number: US-B.I. PHARMACEUTICALS,INC./RIDGEFIELD-2012-BP-14635BP

PATIENT
  Sex: Male
  Weight: 68 kg

DRUGS (4)
  1. POTASSIUM CHLORIDE [Concomitant]
     Indication: CARDIAC DISORDER
     Dosage: 80 MEQ
     Route: 048
  2. TOPROL-XL [Concomitant]
     Indication: BLOOD PRESSURE
     Dosage: 25 MG
     Route: 048
  3. MICARDIS [Suspect]
     Indication: BLOOD PRESSURE
     Dosage: 80 MG
     Route: 048
     Dates: start: 20120101
  4. INSPRA [Concomitant]
     Indication: ELECTROLYTE SUBSTITUTION THERAPY
     Dates: end: 20120620

REACTIONS (7)
  - DECREASED INTEREST [None]
  - DYSPNOEA [None]
  - SOMNOLENCE [None]
  - HYPOACUSIS [None]
  - DIZZINESS [None]
  - GAIT DISTURBANCE [None]
  - DISTURBANCE IN ATTENTION [None]
